FAERS Safety Report 17815427 (Version 1)
Quarter: 2020Q2

REPORT INFORMATION
  Report Type: Spontaneous
  Country: US (occurrence: US)
  Receive Date: 20200521
  Receipt Date: 20200521
  Transmission Date: 20200714
  Serious: No
  Sender: FDA-Public Use
  Company Number: None

PATIENT
  Age: 69 Year
  Sex: Male
  Weight: 111.6 kg

DRUGS (22)
  1. CARVEDILOL. [Concomitant]
     Active Substance: CARVEDILOL
  2. METHYLPREDNISOLONE SODIUM SUCCINATE. [Concomitant]
     Active Substance: METHYLPREDNISOLONE SODIUM SUCCINATE
  3. IBRUTINIB [Concomitant]
     Active Substance: IBRUTINIB
  4. DIVALPROEX [Concomitant]
     Active Substance: DIVALPROEX SODIUM
  5. APIXABAN [Concomitant]
     Active Substance: APIXABAN
  6. ASPIRIN (ENTERIC COATED) 81 MG DAILY [Concomitant]
  7. TAMSULOSIN [Concomitant]
     Active Substance: TAMSULOSIN
  8. LORATADINE. [Concomitant]
     Active Substance: LORATADINE
  9. MONTELUKAST [Concomitant]
     Active Substance: MONTELUKAST SODIUM
  10. REMDESIVIR. [Suspect]
     Active Substance: REMDESIVIR
     Indication: COVID-19
     Dosage: ?          OTHER FREQUENCY:X1 THEN100MG Q24H;?
     Route: 042
  11. ACETAMINOPHEN. [Concomitant]
     Active Substance: ACETAMINOPHEN
  12. ATORVASTATIN [Concomitant]
     Active Substance: ATORVASTATIN
  13. FAMOTIDINE. [Concomitant]
     Active Substance: FAMOTIDINE
  14. INSULIN, REGULAR (SLIDING SCALE) [Concomitant]
  15. MORPHINE, INTRAVENOUS (PRN) [Concomitant]
  16. BENZTROPINE. [Concomitant]
     Active Substance: BENZTROPINE
  17. PANTOPRAZOLE [Concomitant]
     Active Substance: PANTOPRAZOLE
  18. AMLODIPINE [Concomitant]
     Active Substance: AMLODIPINE BESYLATE
  19. INSULIN GLARGINE [Concomitant]
     Active Substance: INSULIN GLARGINE
  20. GUAIFENESIN + CODEINE PRN [Concomitant]
  21. IPRATROPIUM AND ALBUTEROL INHALATION [Concomitant]
  22. QUETIAPINE (AND I RAN OUT OF ROOM: ZOSYN) [Concomitant]

REACTIONS (2)
  - Condition aggravated [None]
  - Body temperature increased [None]

NARRATIVE: CASE EVENT DATE: 20200519
